FAERS Safety Report 19844915 (Version 1)
Quarter: 2021Q3

REPORT INFORMATION
  Report Type: Spontaneous
  Country: NL (occurrence: NL)
  Receive Date: 20210916
  Receipt Date: 20210916
  Transmission Date: 20211014
  Serious: Yes (Disabling)
  Sender: FDA-Public Use
  Company Number: NL-PFIZER INC-202101154920

PATIENT
  Age: 43 Year
  Sex: Female
  Weight: 92 kg

DRUGS (2)
  1. SERTRALINE HCL [Suspect]
     Active Substance: SERTRALINE HYDROCHLORIDE
     Indication: DEPRESSED MOOD
     Dosage: 31 MG AND 3 MG, ALTERNATE DAY (ALTERNATING FROM 31 MG PER DAY TO 3 MG PER DAY)
     Dates: start: 2016, end: 20210601
  2. SERTRALINE HCL [Suspect]
     Active Substance: SERTRALINE HYDROCHLORIDE
     Dosage: 31 MG AND 3 MG, ALTERNATE DAY (ALTERNATING FROM 31 MG PER DAY TO 3 MG PER DAY)
     Dates: start: 2016, end: 20210601

REACTIONS (2)
  - Tic [Recovering/Resolving]
  - Off label use [Unknown]

NARRATIVE: CASE EVENT DATE: 2016
